FAERS Safety Report 20181211 (Version 1)
Quarter: 2021Q4

REPORT INFORMATION
  Report Type: Spontaneous
  Country: US (occurrence: US)
  Receive Date: 20211214
  Receipt Date: 20211214
  Transmission Date: 20220303
  Serious: No
  Sender: FDA-Public Use
  Company Number: US-JNJFOC-20211212060

PATIENT

DRUGS (2)
  1. ZYRTEC [Suspect]
     Active Substance: CETIRIZINE HYDROCHLORIDE
     Indication: Sneezing
     Route: 065
  2. CLARITIN [Suspect]
     Active Substance: LORATADINE
     Indication: Sneezing
     Route: 065

REACTIONS (1)
  - Drug ineffective [Unknown]
